FAERS Safety Report 14420838 (Version 1)
Quarter: 2018Q1

REPORT INFORMATION
  Report Type: Spontaneous
  Country: US (occurrence: US)
  Receive Date: 20180122
  Receipt Date: 20180122
  Transmission Date: 20180509
  Serious: No
  Sender: FDA-Public Use
  Company Number: US-ROCHE-1898428

PATIENT
  Sex: Male

DRUGS (7)
  1. PROTONIX (OMEPRAZOLE) [Concomitant]
     Active Substance: OMEPRAZOLE
  2. ALLOPURINOL. [Concomitant]
     Active Substance: ALLOPURINOL
     Route: 065
  3. RITUXAN [Suspect]
     Active Substance: RITUXIMAB
     Indication: PRODUCT USED FOR UNKNOWN INDICATION
     Route: 042
  4. ACYCLOVIR. [Concomitant]
     Active Substance: ACYCLOVIR
  5. BENDAMUSTINE [Concomitant]
     Active Substance: BENDAMUSTINE
  6. IMBRUVICA [Concomitant]
     Active Substance: IBRUTINIB
  7. DOCUSATE SODIUM. [Concomitant]
     Active Substance: DOCUSATE SODIUM

REACTIONS (1)
  - White blood cell count decreased [Unknown]
